FAERS Safety Report 17221348 (Version 1)
Quarter: 2019Q4

REPORT INFORMATION
  Report Type: Other
  Country: US (occurrence: US)
  Receive Date: 20191231
  Receipt Date: 20191231
  Transmission Date: 20200122
  Serious: Yes (Death, Life-Threatening, Hospitalization)
  Sender: FDA-Public Use
  Company Number: US-NOSTRUM LABORATORIES, INC.-2078401

PATIENT
  Age: 64 Year
  Sex: Male

DRUGS (3)
  1. SIMVASTATIN. [Interacting]
     Active Substance: SIMVASTATIN
     Route: 049
  2. COLCHICINE. [Interacting]
     Active Substance: COLCHICINE
     Route: 048
  3. CLARITHROMYCIN EXTENDED RELEASE [Suspect]
     Active Substance: CLARITHROMYCIN
     Indication: ACUTE SINUSITIS
     Route: 048

REACTIONS (10)
  - Hyperphosphataemia [Fatal]
  - Rhabdomyolysis [Fatal]
  - Nosocomial infection [Fatal]
  - Hypocalcaemia [Fatal]
  - Cardiac arrest [Not Recovered/Not Resolved]
  - Hyperkalaemia [Fatal]
  - Drug-induced liver injury [Not Recovered/Not Resolved]
  - Acute kidney injury [Fatal]
  - Cerebral infarction [Not Recovered/Not Resolved]
  - Obstructive pancreatitis [Not Recovered/Not Resolved]
